FAERS Safety Report 9366792 (Version 4)
Quarter: 2014Q2

REPORT INFORMATION
  Report Type: Report from Study
  Country: US (occurrence: US)
  Receive Date: 20130625
  Receipt Date: 20140410
  Transmission Date: 20141212
  Serious: Yes (Hospitalization, Other)
  Sender: FDA-Public Use
  Company Number: US-TEVA-413957USA

PATIENT
  Age: 70 Year
  Sex: Female

DRUGS (18)
  1. FLUOROURACIL [Suspect]
     Indication: NEOPLASM
     Route: 042
     Dates: start: 20130514
  2. FLUOROURACIL [Suspect]
     Dates: start: 201206, end: 20130407
  3. FOLINIC ACID [Suspect]
     Indication: NEOPLASM
     Route: 042
     Dates: start: 20130514
  4. IRINOTECAN [Suspect]
     Indication: NEOPLASM
     Route: 042
     Dates: start: 20130514
  5. ABT-888 [Suspect]
     Indication: NEOPLASM
     Dosage: 200 MG/M2 DAILY; ON DAYS 1-5 AND 15-19 EVERY 28 DAYS
     Route: 048
     Dates: start: 20130514
  6. CARVEDILOL [Concomitant]
     Dosage: 12.5 MILLIGRAM DAILY;
  7. CALCIUM [Concomitant]
     Dosage: 1 DOSAGE FORMS DAILY;
  8. ERGOCALCIFEROL [Concomitant]
     Dosage: 1000 IU (INTERNATIONAL UNIT) DAILY;
  9. BISACODYL [Concomitant]
     Indication: CONSTIPATION
     Dosage: 1 DOSAGE FORMS DAILY; 1-2 AS REQUIRED
  10. OXYCODONE [Concomitant]
     Indication: PAIN
     Dosage: 20 MILLIGRAM DAILY;
  11. ONDANSETRON [Concomitant]
     Indication: NAUSEA
     Dosage: 8 MILLIGRAM DAILY;
  12. LORATADINE [Concomitant]
     Indication: SINUS DISORDER
     Dosage: 10 MILLIGRAM DAILY;
     Dates: start: 20130129
  13. NASAL SPRAY [Concomitant]
     Indication: SINUS DISORDER
     Dosage: 1 DOSAGE FORMS DAILY; 1-2 MIST AS REQUIRED
     Dates: start: 20130111
  14. ACETYLSALICYLIC ACID [Concomitant]
     Indication: CARDIOVASCULAR EVENT PROPHYLAXIS
     Dosage: 81 MILLIGRAM DAILY;
  15. EYE DROPS [Concomitant]
     Indication: CATARACT
     Dosage: 1 DOSAGE FORMS DAILY;
  16. TYLENOL [Concomitant]
     Indication: ABDOMINAL PAIN
     Dosage: 2 TABLETS AS REQUIRED
     Dates: start: 20130515
  17. PEPTO-BISMOL [Concomitant]
     Indication: PROPHYLAXIS OF NAUSEA AND VOMITING
     Dosage: 30 CC AS REQUIRED
     Dates: start: 20130515
  18. AVASTIN [Concomitant]
     Indication: COLORECTAL ADENOCARCINOMA

REACTIONS (2)
  - Febrile neutropenia [Recovered/Resolved]
  - Neutropenia [Recovered/Resolved]
